FAERS Safety Report 23820871 (Version 1)
Quarter: 2024Q2

REPORT INFORMATION
  Report Type: Spontaneous
  Country: US (occurrence: US)
  Receive Date: 20240506
  Receipt Date: 20240506
  Transmission Date: 20240716
  Serious: Yes (Hospitalization, Other)
  Sender: FDA-Public Use
  Company Number: US-002147023-NVSC2024US091798

PATIENT
  Sex: Female

DRUGS (1)
  1. COSENTYX [Suspect]
     Active Substance: SECUKINUMAB
     Indication: Product used for unknown indication
     Dosage: UNK
     Route: 065

REACTIONS (8)
  - Oxygen saturation decreased [Unknown]
  - Pneumonitis [Unknown]
  - Arthralgia [Unknown]
  - Immune system disorder [Unknown]
  - Infection [Unknown]
  - Feeling abnormal [Unknown]
  - Swelling [Unknown]
  - Dyspnoea [Unknown]
